FAERS Safety Report 8168640-4 (Version None)
Quarter: 2012Q1

REPORT INFORMATION
  Report Type: 
  Country: None (occurrence: None)
  Receive Date: 20120227
  Receipt Date: 20120207
  Transmission Date: 20120608
  Serious: Yes (Other)
  Sender: FDA-Public Use
  Company Number: CA-BAXTER-2011BH040412

PATIENT
  Age: 64 Year
  Sex: Male

DRUGS (1)
  1. GAMMAGARD LIQUID [Suspect]
     Indication: PRODUCT USED FOR UNKNOWN INDICATION
     Route: 065
     Dates: start: 20110218, end: 20110218

REACTIONS (4)
  - CHILLS [None]
  - NECK PAIN [None]
  - TACHYCARDIA [None]
  - HYPERTENSION [None]
